FAERS Safety Report 5056576-7 (Version None)
Quarter: 2006Q3

REPORT INFORMATION
  Report Type: 
  Country: None (occurrence: None)
  Receive Date: 20060714
  Receipt Date: 20060628
  Transmission Date: 20061208
  Serious: Yes (Hospitalization)
  Sender: FDA-Public Use
  Company Number: 163-21880-06050521

PATIENT
  Age: 71 Year
  Sex: Male

DRUGS (7)
  1. REVLIMID [Suspect]
     Indication: MYELODYSPLASTIC SYNDROME
     Dosage: SEE IMAGE
     Route: 048
     Dates: start: 20060410, end: 20060428
  2. REVLIMID [Suspect]
     Indication: MYELODYSPLASTIC SYNDROME
     Dosage: SEE IMAGE
     Route: 048
     Dates: start: 20060506
  3. METFORMIN [Concomitant]
  4. ASPIRIN TAB [Concomitant]
  5. ATENOLOL [Concomitant]
  6. AMARYL [Concomitant]
  7. LASIX [Concomitant]

REACTIONS (1)
  - INTESTINAL OBSTRUCTION [None]
